FAERS Safety Report 10916503 (Version 1)
Quarter: 2015Q1

REPORT INFORMATION
  Report Type: Spontaneous
  Country: FR (occurrence: None)
  Receive Date: 20150311
  Receipt Date: 20150311
  Transmission Date: 20150721
  Serious: Yes (Hospitalization)
  Sender: FDA-Public Use
  Company Number: 2015-0731-SPO

PATIENT
  Age: 53 Year
  Sex: Female

DRUGS (2)
  1. OESTROGEL [Suspect]
     Active Substance: ESTRADIOL
     Indication: PRODUCT USED FOR UNKNOWN INDICATION
     Dosage: 1 DOSE / 3 DAYS DURING THE LAST 10 YEARS, 1 IN 3 D, ORAL
     Route: 048
  2. ANDROCUR [Suspect]
     Active Substance: CYPROTERONE ACETATE
     Indication: POLYCYSTIC OVARIES
     Dosage: 50MG (50MG, 1 IN 1 D), 1 IN 1 D,?
     Dates: start: 1982, end: 201012

REACTIONS (11)
  - Loss of libido [None]
  - Exophthalmos [None]
  - Diarrhoea [None]
  - Hyperaesthesia [None]
  - Swelling face [None]
  - Fatigue [None]
  - Vomiting [None]
  - Ageusia [None]
  - Anosmia [None]
  - Meningioma [None]
  - Post procedural complication [None]

NARRATIVE: CASE EVENT DATE: 201012
